FAERS Safety Report 15261185 (Version 1)
Quarter: 2018Q3

REPORT INFORMATION
  Report Type: Spontaneous
  Country: US (occurrence: US)
  Receive Date: 20180809
  Receipt Date: 20180809
  Transmission Date: 20181010
  Serious: No
  Sender: FDA-Public Use
  Company Number: US-GUERBET-US-20180140

PATIENT
  Age: 50 Year
  Sex: Female
  Weight: 62.6 kg

DRUGS (1)
  1. DOTAREM [Suspect]
     Active Substance: GADOTERATE MEGLUMINE
     Indication: NUCLEAR MAGNETIC RESONANCE IMAGING
     Route: 042
     Dates: start: 20180601, end: 20180601

REACTIONS (4)
  - Eye swelling [Recovered/Resolved]
  - Nausea [Recovered/Resolved]
  - Eye irritation [Recovered/Resolved]
  - Product use in unapproved indication [Recovered/Resolved]

NARRATIVE: CASE EVENT DATE: 20180601
